FAERS Safety Report 22073481 (Version 3)
Quarter: 2024Q1

REPORT INFORMATION
  Report Type: Spontaneous
  Country: US (occurrence: US)
  Receive Date: 20230308
  Receipt Date: 20240221
  Transmission Date: 20240410
  Serious: No
  Sender: FDA-Public Use
  Company Number: US-ELI_LILLY_AND_COMPANY-US202303003072

PATIENT
  Age: 37 Year
  Sex: Female

DRUGS (15)
  1. MOUNJARO [Suspect]
     Active Substance: TIRZEPATIDE
     Indication: Weight decreased
     Dosage: 12.5 MG, UNKNOWN
     Route: 065
     Dates: start: 202210
  2. MOUNJARO [Suspect]
     Active Substance: TIRZEPATIDE
     Indication: Weight decreased
     Dosage: 12.5 MG, UNKNOWN
     Route: 065
     Dates: start: 202210
  3. MOUNJARO [Suspect]
     Active Substance: TIRZEPATIDE
     Indication: Weight decreased
     Dosage: 12.5 MG, UNKNOWN
     Route: 065
     Dates: start: 202210
  4. MOUNJARO [Suspect]
     Active Substance: TIRZEPATIDE
     Indication: Weight decreased
     Dosage: 12.5 MG, UNKNOWN
     Route: 065
     Dates: start: 202210
  5. MOUNJARO [Suspect]
     Active Substance: TIRZEPATIDE
     Indication: Weight decreased
     Dosage: 12.5 MG, UNKNOWN
     Route: 065
     Dates: start: 202210
  6. MOUNJARO [Suspect]
     Active Substance: TIRZEPATIDE
     Indication: Blood glucose
  7. MOUNJARO [Suspect]
     Active Substance: TIRZEPATIDE
     Indication: Blood glucose
  8. MOUNJARO [Suspect]
     Active Substance: TIRZEPATIDE
     Indication: Blood glucose
  9. MOUNJARO [Suspect]
     Active Substance: TIRZEPATIDE
     Indication: Blood glucose
  10. MOUNJARO [Suspect]
     Active Substance: TIRZEPATIDE
     Indication: Blood glucose
  11. MOUNJARO [Suspect]
     Active Substance: TIRZEPATIDE
     Indication: Food craving
  12. MOUNJARO [Suspect]
     Active Substance: TIRZEPATIDE
     Indication: Food craving
  13. MOUNJARO [Suspect]
     Active Substance: TIRZEPATIDE
     Indication: Food craving
  14. MOUNJARO [Suspect]
     Active Substance: TIRZEPATIDE
     Indication: Food craving
  15. MOUNJARO [Suspect]
     Active Substance: TIRZEPATIDE
     Indication: Food craving

REACTIONS (2)
  - Hypoaesthesia [Recovered/Resolved]
  - Off label use [Unknown]
